FAERS Safety Report 23675115 (Version 2)
Quarter: 2024Q2

REPORT INFORMATION
  Report Type: Spontaneous
  Country: GR (occurrence: GR)
  Receive Date: 20240326
  Receipt Date: 20240517
  Transmission Date: 20240716
  Serious: Yes (Life-Threatening)
  Sender: FDA-Public Use
  Company Number: GR-NALPROPION PHARMACEUTICALS INC.-GR-2024CUR001395

PATIENT
  Age: 47 Year
  Sex: Female
  Weight: 110 kg

DRUGS (5)
  1. BUPROPION HYDROCHLORIDE\NALTREXONE HYDROCHLORIDE [Suspect]
     Active Substance: BUPROPION HYDROCHLORIDE\NALTREXONE HYDROCHLORIDE
     Indication: Obesity
     Dosage: STRENGTH: 8/90 MG, INITIALLY 1X1
     Route: 048
     Dates: start: 20240220, end: 2024
  2. BUPROPION HYDROCHLORIDE\NALTREXONE HYDROCHLORIDE [Suspect]
     Active Substance: BUPROPION HYDROCHLORIDE\NALTREXONE HYDROCHLORIDE
     Dosage: STRENGTH: 8/90 MG, AFTERWARDS 1X2
     Route: 048
     Dates: start: 2024, end: 2024
  3. OLMESARTAN MEDOXOMIL [Concomitant]
     Active Substance: OLMESARTAN MEDOXOMIL
     Indication: Hypertension
     Dosage: 1 DF, 1 IN 1 DAY
     Dates: start: 20230101
  4. EZETIMIBE\ROSUVASTATIN [Concomitant]
     Active Substance: EZETIMIBE\ROSUVASTATIN
     Indication: Dyslipidaemia
     Dosage: 1 DF, 1 IN 1 DAY
     Dates: start: 20230101
  5. OZEMPIC [Concomitant]
     Active Substance: SEMAGLUTIDE
     Indication: Diabetes mellitus
     Dosage: 1 DF, 1 IN 1 WEEK
     Dates: start: 20230101

REACTIONS (3)
  - Stridor [Recovering/Resolving]
  - Sputum increased [Recovering/Resolving]
  - Dyspnoea [Recovering/Resolving]

NARRATIVE: CASE EVENT DATE: 20240220
